FAERS Safety Report 4620443-0 (Version None)
Quarter: 2005Q1

REPORT INFORMATION
  Report Type: 
  Country: None (occurrence: None)
  Receive Date: 20050324
  Receipt Date: 20050309
  Transmission Date: 20050727
  Serious: Yes (Other)
  Sender: FDA-Public Use
  Company Number: S05-USA-01349-03

PATIENT

DRUGS (1)
  1. NAMENDA [Suspect]

REACTIONS (1)
  - RENAL IMPAIRMENT [None]
